FAERS Safety Report 6677726-2 (Version None)
Quarter: 2010Q2

REPORT INFORMATION
  Report Type: 
  Country: None (occurrence: None)
  Receive Date: 20100412
  Receipt Date: 20100402
  Transmission Date: 20101027
  Serious: Yes (Other)
  Sender: FDA-Public Use
  Company Number: IL-TYCO HEALTHCARE/MALLINCKRODT-T201000947

PATIENT

DRUGS (1)
  1. FENTANYL-100 [Suspect]
     Dosage: UNK
     Route: 064

REACTIONS (1)
  - MUSCLE RIGIDITY [None]
